FAERS Safety Report 10991597 (Version 2)
Quarter: 2015Q2

REPORT INFORMATION
  Report Type: Spontaneous
  Country: IT (occurrence: IT)
  Receive Date: 20150406
  Receipt Date: 20150414
  Transmission Date: 20150821
  Serious: Yes (Hospitalization)
  Sender: FDA-Public Use
  Company Number: IT-PFIZER INC-2015116296

PATIENT
  Age: 10 Year
  Sex: Female

DRUGS (1)
  1. ZITHROMAX [Suspect]
     Active Substance: AZITHROMYCIN DIHYDRATE
     Indication: BRONCHITIS
     Dosage: UNK
     Route: 048
     Dates: start: 20140820, end: 20140822

REACTIONS (3)
  - Rash maculo-papular [Unknown]
  - Hypersensitivity [Unknown]
  - Vulvovaginal erythema [Unknown]

NARRATIVE: CASE EVENT DATE: 20140822
